FAERS Safety Report 6369651-1 (Version None)
Quarter: 2009Q3

REPORT INFORMATION
  Report Type: 
  Country: None (occurrence: None)
  Receive Date: 20090923
  Receipt Date: 20090615
  Transmission Date: 20100115
  Serious: Yes (Death)
  Sender: FDA-Public Use
  Company Number: PHEH2009US11239

PATIENT
  Sex: Female

DRUGS (2)
  1. EXJADE [Suspect]
     Indication: BLOOD DISORDER
     Dosage: 2000 MG, QD
     Route: 048
     Dates: start: 20060912, end: 20090523
  2. EXJADE [Suspect]
     Indication: IRON OVERLOAD

REACTIONS (1)
  - DEATH [None]
